FAERS Safety Report 12161853 (Version 3)
Quarter: 2017Q2

REPORT INFORMATION
  Report Type: Report from Study
  Country: JP (occurrence: JP)
  Receive Date: 20160309
  Receipt Date: 20170610
  Transmission Date: 20170830
  Serious: Yes (Death, Hospitalization)
  Sender: FDA-Public Use
  Company Number: JP-AMGEN-JPNNI2016029284

PATIENT
  Age: 79 Year
  Sex: Male

DRUGS (3)
  1. DARBEPOETIN ALFA [Suspect]
     Active Substance: DARBEPOETIN ALFA
     Dosage: UNK
     Route: 042
     Dates: start: 20151228, end: 20160125
  2. DARBEPOETIN ALFA [Suspect]
     Active Substance: DARBEPOETIN ALFA
     Indication: PRODUCT USED FOR UNKNOWN INDICATION
     Dosage: UNK
     Route: 042
     Dates: start: 20150216, end: 20150713
  3. DARBEPOETIN ALFA [Suspect]
     Active Substance: DARBEPOETIN ALFA
     Dosage: UNK
     Route: 042
     Dates: start: 20151218, end: 20151221

REACTIONS (6)
  - Pleural effusion [Unknown]
  - Peripheral vascular disorder [Fatal]
  - Sepsis [Fatal]
  - Pneumonia [Recovering/Resolving]
  - Diverticulitis [Recovering/Resolving]
  - Gangrene [Fatal]

NARRATIVE: CASE EVENT DATE: 20150720
